FAERS Safety Report 5597404-0 (Version None)
Quarter: 2008Q1

REPORT INFORMATION
  Report Type: 
  Country: None (occurrence: None)
  Receive Date: 20080121
  Receipt Date: 20051128
  Transmission Date: 20080703
  Serious: Yes (Life-Threatening)
  Sender: FDA-Public Use
  Company Number: PT-ELI_LILLY_AND_COMPANY-PT200801003478

PATIENT

DRUGS (6)
  1. DROTRECOGIN ALFA (ACTIVATED) [Suspect]
     Dosage: UNK, UNKNOWN
     Route: 065
     Dates: start: 20051126, end: 20051127
  2. ANTIBIOTICS [Concomitant]
     Dosage: UNK, UNKNOWN
     Route: 065
  3. DOBUTAMINE HCL [Concomitant]
     Dosage: UNK, UNKNOWN
     Route: 065
  4. NORADRENALINE [Concomitant]
     Dosage: UNK, UNKNOWN
     Route: 065
  5. AMIODARONE [Concomitant]
     Dosage: UNK, UNKNOWN
     Route: 065
  6. INSULIN [Concomitant]
     Dosage: UNK, UNKNOWN
     Route: 065

REACTIONS (1)
  - ACUTE MYOCARDIAL INFARCTION [None]
